FAERS Safety Report 17713065 (Version 1)
Quarter: 2020Q2

REPORT INFORMATION
  Report Type: Spontaneous
  Country: CN (occurrence: CN)
  Receive Date: 20200427
  Receipt Date: 20200427
  Transmission Date: 20200714
  Serious: Yes (Death)
  Sender: FDA-Public Use
  Company Number: CN-FRESENIUS KABI-FK202004108

PATIENT
  Age: 25 Year
  Sex: Male

DRUGS (2)
  1. BIAPENEM [Suspect]
     Active Substance: BIAPENEM
     Indication: STAPHYLOCOCCAL INFECTION
     Route: 065
  2. VANCOMYCIN (MANUFACTURER UNKNOWN) [Suspect]
     Active Substance: VANCOMYCIN
     Indication: STAPHYLOCOCCAL INFECTION
     Route: 065

REACTIONS (1)
  - Treatment failure [Fatal]
